FAERS Safety Report 23740007 (Version 2)
Quarter: 2024Q2

REPORT INFORMATION
  Report Type: Report from Study
  Country: US (occurrence: US)
  Receive Date: 20240414
  Receipt Date: 20240510
  Transmission Date: 20240716
  Serious: Yes (Other)
  Sender: FDA-Public Use
  Company Number: US-ZENPEP LLC-2024AIMT00650

PATIENT

DRUGS (2)
  1. ZENPEP [Suspect]
     Active Substance: PANCRELIPASE AMYLASE\PANCRELIPASE LIPASE\PANCRELIPASE PROTEASE
     Indication: Pancreatic failure
     Dosage: 40000 UPS 100CT CAPSULES
     Route: 048
  2. ZENPEP [Suspect]
     Active Substance: PANCRELIPASE AMYLASE\PANCRELIPASE LIPASE\PANCRELIPASE PROTEASE
     Dosage: 40000 UPS UNITS, ONCE, LAST DOSE PRIOR EVENT
     Route: 048

REACTIONS (7)
  - Neoplasm malignant [Unknown]
  - Systemic lupus erythematosus [Unknown]
  - Pancreatitis [Unknown]
  - Diabetes mellitus [Unknown]
  - Fibromyalgia [Unknown]
  - Hypertension [Unknown]
  - Restless legs syndrome [Unknown]
